FAERS Safety Report 4602695-6 (Version None)
Quarter: 2005Q1

REPORT INFORMATION
  Report Type: 
  Country: None (occurrence: None)
  Receive Date: 20050307
  Receipt Date: 20050223
  Transmission Date: 20050727
  Serious: Yes (Other)
  Sender: FDA-Public Use
  Company Number: A-US2005-08805

PATIENT
  Age: 77 Year
  Sex: Female

DRUGS (10)
  1. TRACLEER [Suspect]
     Indication: PULMONARY HYPERTENSION
     Dosage: 125 MG,  BID, ORAL; 62.5 MG, BID, ORAL
     Route: 048
     Dates: start: 20020801, end: 20020901
  2. TRACLEER [Suspect]
     Indication: PULMONARY HYPERTENSION
     Dosage: 125 MG,  BID, ORAL; 62.5 MG, BID, ORAL
     Route: 048
     Dates: start: 20020901, end: 20050125
  3. CARDIZEM [Concomitant]
  4. RYTHMOL [Concomitant]
  5. ZESTORETIC  STUART COMPANY (LISINOPRIL, HYDROCHLOROTHIAZIDE) [Concomitant]
  6. NEXIUM [Concomitant]
  7. COUMADIN [Concomitant]
  8. ACTONEL [Concomitant]
  9. FOLIC ACID [Concomitant]
  10. CALCIUM (CALCIUM) [Concomitant]

REACTIONS (2)
  - ALANINE AMINOTRANSFERASE INCREASED [None]
  - ASPARTATE AMINOTRANSFERASE INCREASED [None]
